FAERS Safety Report 12605124 (Version 1)
Quarter: 2016Q3

REPORT INFORMATION
  Report Type: Report from Study
  Country: TH (occurrence: TH)
  Receive Date: 20160729
  Receipt Date: 20160729
  Transmission Date: 20161109
  Serious: Yes (Other)
  Sender: FDA-Public Use
  Company Number: TH-B.I. PHARMACEUTICALS,INC./RIDGEFIELD-2015-BI-30382RT

PATIENT
  Age: 45 Year
  Sex: Male
  Weight: 64 kg

DRUGS (5)
  1. AFATINIB [Suspect]
     Active Substance: AFATINIB
     Indication: NON-SMALL CELL LUNG CANCER
     Dosage: 30 MG
     Route: 048
     Dates: start: 201503
  2. AFATINIB [Suspect]
     Active Substance: AFATINIB
     Dosage: 50 MG
     Route: 048
     Dates: start: 20150630
  3. AFATINIB [Suspect]
     Active Substance: AFATINIB
     Dosage: 40 MG
     Route: 048
     Dates: start: 20150310, end: 20150629
  4. AFATINIB [Suspect]
     Active Substance: AFATINIB
     Dosage: 30 MG
     Route: 048
     Dates: end: 20160119
  5. AFATINIB [Suspect]
     Active Substance: AFATINIB
     Dosage: 50 MG
     Route: 048
     Dates: start: 20160119

REACTIONS (2)
  - Malignant neoplasm progression [Unknown]
  - Acne [Unknown]

NARRATIVE: CASE EVENT DATE: 201504
